FAERS Safety Report 5971858-X (Version None)
Quarter: 2008Q4

REPORT INFORMATION
  Report Type: 
  Country: None (occurrence: None)
  Receive Date: 20081125
  Receipt Date: 20081120
  Transmission Date: 20090506
  Serious: Yes (Hospitalization)
  Sender: FDA-Public Use
  Company Number: 1000001668

PATIENT
  Age: 31 Year
  Sex: Male

DRUGS (5)
  1. CAMPRAL [Suspect]
     Indication: ALCOHOLISM
     Dosage: 1998 MG (666 MG, 3 IN 1 D), ORAL
     Route: 048
     Dates: start: 20081012
  2. PROZAC [Concomitant]
  3. TRAZODONE HCL [Concomitant]
  4. ROZEREM [Concomitant]
  5. LIBRIUM [Concomitant]

REACTIONS (3)
  - FACIAL BONES FRACTURE [None]
  - FALL [None]
  - JAW FRACTURE [None]
